FAERS Safety Report 24167350 (Version 1)
Quarter: 2024Q3

REPORT INFORMATION
  Report Type: Report from Study
  Country: US (occurrence: US)
  Receive Date: 20240802
  Receipt Date: 20240802
  Transmission Date: 20241017
  Serious: Yes (Hospitalization)
  Sender: BAYER
  Company Number: US-BAYER-2024A106903

PATIENT
  Age: 53 Year
  Sex: Female

DRUGS (1)
  1. STIVARGA [Suspect]
     Active Substance: REGORAFENIB MONOHYDRATE
     Indication: Rectal cancer
     Dosage: 80 MG, QD (1 WEEK)
     Route: 048

REACTIONS (3)
  - Dehydration [Recovering/Resolving]
  - Diarrhoea [Recovering/Resolving]
  - Adverse drug reaction [Recovering/Resolving]
